FAERS Safety Report 20471484 (Version 2)
Quarter: 2022Q2

REPORT INFORMATION
  Report Type: Spontaneous
  Country: US (occurrence: US)
  Receive Date: 20220214
  Receipt Date: 20220602
  Transmission Date: 20220721
  Serious: Yes (Other)
  Sender: FDA-Public Use
  Company Number: US-GILEAD-2022-0569317

PATIENT
  Sex: Female
  Weight: 81.633 kg

DRUGS (24)
  1. TRUVADA [Suspect]
     Active Substance: EMTRICITABINE\TENOFOVIR DISOPROXIL FUMARATE
     Indication: HIV infection
     Dosage: UNK
     Route: 048
     Dates: start: 2006, end: 201801
  2. GENVOYA [Concomitant]
     Active Substance: COBICISTAT\ELVITEGRAVIR\EMTRICITABINE\TENOFOVIR ALAFENAMIDE FUMARATE
  3. CARVEDILOL [Concomitant]
     Active Substance: CARVEDILOL
  4. LOSARTAN [Concomitant]
     Active Substance: LOSARTAN
  5. EPIVIR [Concomitant]
     Active Substance: LAMIVUDINE
  6. KALETRA [Concomitant]
     Active Substance: LOPINAVIR\RITONAVIR
  7. TIVICAY [Concomitant]
     Active Substance: DOLUTEGRAVIR SODIUM
  8. ZIAGEN [Concomitant]
     Active Substance: ABACAVIR SULFATE
  9. ATENOLOL [Concomitant]
     Active Substance: ATENOLOL
  10. ATORVASTATIN [Concomitant]
     Active Substance: ATORVASTATIN
  11. ABACAVIR [Concomitant]
     Active Substance: ABACAVIR
  12. CLONAZEPAM [Concomitant]
     Active Substance: CLONAZEPAM
  13. CYCLOBENZAPRINE [Concomitant]
     Active Substance: CYCLOBENZAPRINE
  14. DOCUSATE SODIUM [Concomitant]
     Active Substance: DOCUSATE SODIUM
  15. LEXAPRO [Concomitant]
     Active Substance: ESCITALOPRAM OXALATE
  16. FLUTICASONE [Concomitant]
     Active Substance: FLUTICASONE
  17. FUROSEMIDE [Concomitant]
     Active Substance: FUROSEMIDE
  18. GABAPENTIN [Concomitant]
     Active Substance: GABAPENTIN
  19. MELOXICAM [Concomitant]
     Active Substance: MELOXICAM
  20. MIRTAZAPINE [Concomitant]
     Active Substance: MIRTAZAPINE
  21. PROCHLORPERAZINE [Concomitant]
     Active Substance: PROCHLORPERAZINE
  22. NARCAN [Concomitant]
     Active Substance: NALOXONE HYDROCHLORIDE
  23. OMEPRAZOLE [Concomitant]
     Active Substance: OMEPRAZOLE
  24. TEMAZEPAM [Concomitant]
     Active Substance: TEMAZEPAM

REACTIONS (15)
  - Chronic kidney disease [Not Recovered/Not Resolved]
  - Osteoporosis [Unknown]
  - End stage renal disease [Not Recovered/Not Resolved]
  - Bone demineralisation [Unknown]
  - Stress fracture [Unknown]
  - Pain [Not Recovered/Not Resolved]
  - Emotional distress [Not Recovered/Not Resolved]
  - Anxiety [Not Recovered/Not Resolved]
  - Anhedonia [Not Recovered/Not Resolved]
  - Osteopenia [Not Recovered/Not Resolved]
  - Foot fracture [Not Recovered/Not Resolved]
  - Humerus fracture [Not Recovered/Not Resolved]
  - Fibula fracture [Not Recovered/Not Resolved]
  - Fibula fracture [Not Recovered/Not Resolved]
  - Hand fracture [Not Recovered/Not Resolved]

NARRATIVE: CASE EVENT DATE: 20120101
